FAERS Safety Report 20893862 (Version 1)
Quarter: 2022Q2

REPORT INFORMATION
  Report Type: Spontaneous
  Country: US (occurrence: None)
  Receive Date: 20220527
  Receipt Date: 20220527
  Transmission Date: 20220721
  Serious: Yes (Other)
  Sender: FDA-Public Use
  Company Number: None

PATIENT
  Age: 68 Year
  Sex: Female
  Weight: 74.25 kg

DRUGS (5)
  1. PAXLOVID [Suspect]
     Active Substance: NIRMATRELVIR\RITONAVIR
     Indication: COVID-19
     Dosage: OTHER QUANTITY : 2 TABLET(S);?FREQUENCY : EVERY 12 HOURS;?
     Route: 048
     Dates: start: 20220511, end: 20220515
  2. PRAVASTATIN [Concomitant]
     Active Substance: PRAVASTATIN
  3. OMEPRAZOLE [Concomitant]
     Active Substance: OMEPRAZOLE
  4. VITAMIN D [Concomitant]
     Active Substance: VITAMIN D NOS
  5. MAGNESIUM [Concomitant]
     Active Substance: MAGNESIUM

REACTIONS (2)
  - SARS-CoV-2 test positive [None]
  - Rebound effect [None]

NARRATIVE: CASE EVENT DATE: 20220522
